FAERS Safety Report 18650485 (Version 1)
Quarter: 2020Q4

REPORT INFORMATION
  Report Type: Spontaneous
  Country: AU (occurrence: AU)
  Receive Date: 20201222
  Receipt Date: 20201222
  Transmission Date: 20210114
  Serious: Yes (Other)
  Sender: FDA-Public Use
  Company Number: AU-BRISTOL-MYERS SQUIBB COMPANY-BMS-2020-108048

PATIENT
  Sex: Female

DRUGS (3)
  1. VALSARTAN. [Suspect]
     Active Substance: VALSARTAN
     Indication: LAMIN A/C GENE MUTATION
     Dosage: 20 MILLIGRAM
     Route: 065
  2. SOTALOL. [Suspect]
     Active Substance: SOTALOL
     Indication: LAMIN A/C GENE MUTATION
     Dosage: 80 MILLIGRAM, BID
     Route: 065
  3. ELIQUIS [Suspect]
     Active Substance: APIXABAN
     Indication: LAMIN A/C GENE MUTATION
     Dosage: 5 MILLIGRAM, BID
     Route: 065

REACTIONS (2)
  - Intentional product use issue [Unknown]
  - Ejection fraction decreased [Unknown]
